FAERS Safety Report 10085218 (Version 2)
Quarter: 2014Q2

REPORT INFORMATION
  Report Type: Report from Study
  Country: DE (occurrence: DE)
  Receive Date: 20140417
  Receipt Date: 20140507
  Transmission Date: 20141212
  Serious: Yes (Death)
  Sender: FDA-Public Use
  Company Number: GXKR2014DE001623

PATIENT
  Age: 64 Year
  Sex: Male

DRUGS (4)
  1. CICLOSPORIN [Suspect]
     Dosage: UNK
     Route: 048
     Dates: start: 20120227, end: 20121227
  2. METHOTREXATE [Suspect]
     Dosage: UNK
     Dates: start: 20091104, end: 20100108
  3. ETANERCEPT [Suspect]
     Dosage: UNK
     Dates: start: 20090609, end: 20100111
  4. USTEKINUMAB [Suspect]
     Dosage: UNK
     Dates: start: 20100224, end: 20120226

REACTIONS (1)
  - Death [Fatal]
